FAERS Safety Report 13124754 (Version 1)
Quarter: 2017Q1

REPORT INFORMATION
  Report Type: Spontaneous
  Country: FR (occurrence: FR)
  Receive Date: 20170118
  Receipt Date: 20170118
  Transmission Date: 20170428
  Serious: Yes (Other)
  Sender: FDA-Public Use
  Company Number: FR-ASTRAZENECA-2017SE04126

PATIENT
  Sex: Male

DRUGS (5)
  1. INEXIUM [Suspect]
     Active Substance: ESOMEPRAZOLE
     Indication: GASTROOESOPHAGEAL REFLUX DISEASE
     Dosage: (10MG IN 20ML OF NACL 0.9%), DAILY
     Route: 042
     Dates: start: 20161116
  2. VENTOLINE [Concomitant]
     Active Substance: ALBUTEROL
  3. POLYIONIQUE [Concomitant]
  4. CELESTENE [Concomitant]
     Active Substance: BETAMETHASONE
  5. POLYSILANE [Concomitant]

REACTIONS (2)
  - Oedema peripheral [Recovered/Resolved]
  - Compartment syndrome [Unknown]

NARRATIVE: CASE EVENT DATE: 20161119
